FAERS Safety Report 9938386 (Version 2)
Quarter: 2014Q1

REPORT INFORMATION
  Report Type: Report from Study
  Country: US (occurrence: US)
  Receive Date: 20140303
  Receipt Date: 20140303
  Transmission Date: 20141002
  Serious: No
  Sender: FDA-Public Use
  Company Number: US-ABBVIE-12P-163-1018832-00

PATIENT
  Age: 41 Year
  Sex: Female

DRUGS (3)
  1. HUMIRA [Suspect]
     Indication: PSORIATIC ARTHROPATHY
     Dates: start: 20121121
  2. ASPIRIN [Concomitant]
     Indication: PAIN
  3. IBUPROFEN [Concomitant]
     Indication: PAIN

REACTIONS (11)
  - Swelling [Unknown]
  - Pyrexia [Not Recovered/Not Resolved]
  - Sinusitis [Unknown]
  - Influenza [Unknown]
  - Drug ineffective [Unknown]
  - Back pain [Unknown]
  - Pain [Unknown]
  - Nasal congestion [Unknown]
  - Injection site pain [Unknown]
  - Drug ineffective [Unknown]
  - Malaise [Unknown]
